FAERS Safety Report 7227277-1 (Version None)
Quarter: 2011Q1

REPORT INFORMATION
  Report Type: 
  Country: None (occurrence: None)
  Receive Date: 20110114
  Receipt Date: 20110103
  Transmission Date: 20110831
  Serious: Yes (Death)
  Sender: FDA-Public Use
  Company Number: A0905646A

PATIENT
  Sex: Female

DRUGS (1)
  1. AVANDIA [Suspect]

REACTIONS (3)
  - MYOCARDIAL INFARCTION [None]
  - CEREBROVASCULAR DISORDER [None]
  - DEATH [None]
